FAERS Safety Report 15266124 (Version 1)
Quarter: 2018Q3

REPORT INFORMATION
  Report Type: Spontaneous
  Country: GB (occurrence: GB)
  Receive Date: 20180810
  Receipt Date: 20180810
  Transmission Date: 20181010
  Serious: Yes (Death)
  Sender: FDA-Public Use
  Company Number: GB-TEVA-2007A-00465

PATIENT
  Age: 81 Year
  Sex: Male

DRUGS (6)
  1. ASPIRIN. [Concomitant]
     Active Substance: ASPIRIN
  2. CALCICHEW [Concomitant]
     Active Substance: CALCIUM CARBONATE
  3. INDAPAMIDE. [Concomitant]
     Active Substance: INDAPAMIDE
  4. METFORMIN [Concomitant]
     Active Substance: METFORMIN HYDROCHLORIDE
  5. LISINOPRIL (UNKNOWN) [Suspect]
     Active Substance: LISINOPRIL
  6. TOLBUTAMIDE. [Concomitant]
     Active Substance: TOLBUTAMIDE

REACTIONS (1)
  - Anaphylactic shock [Fatal]

NARRATIVE: CASE EVENT DATE: 20070303
